FAERS Safety Report 4427347-7 (Version None)
Quarter: 2004Q3

REPORT INFORMATION
  Report Type: 
  Country: None (occurrence: None)
  Receive Date: 20040817
  Receipt Date: 20040614
  Transmission Date: 20050211
  Serious: Yes (Hospitalization, Other)
  Sender: FDA-Public Use
  Company Number: PHEH2004US06474

PATIENT
  Age: 32 Year
  Sex: Female
  Weight: 53 kg

DRUGS (2)
  1. ZELNORM [Suspect]
     Indication: IRRITABLE BOWEL SYNDROME
     Dosage: 6 MG, BID
     Route: 048
     Dates: start: 20040419, end: 20040420
  2. ORAL CONTRACEPTIVE NOS [Concomitant]

REACTIONS (15)
  - ABDOMINAL PAIN [None]
  - COLITIS [None]
  - COLITIS ISCHAEMIC [None]
  - COLONOSCOPY ABNORMAL [None]
  - COMPUTERISED TOMOGRAM ABDOMEN ABNORMAL [None]
  - ENDOSCOPY ABNORMAL [None]
  - GASTRIC POLYPS [None]
  - HAEMORRHAGE [None]
  - INFLAMMATORY BOWEL DISEASE [None]
  - LOCALISED EXFOLIATION [None]
  - MUCOSAL ULCERATION [None]
  - OEDEMA MUCOSAL [None]
  - PYREXIA [None]
  - RECTAL POLYP [None]
  - VOMITING [None]
